FAERS Safety Report 6383380-X (Version None)
Quarter: 2009Q4

REPORT INFORMATION
  Report Type: 
  Country: None (occurrence: None)
  Receive Date: 20091001
  Receipt Date: 20070629
  Transmission Date: 20100525
  Serious: Yes (Other)
  Sender: FDA-Public Use
  Company Number: US-ASTRAZENECA-2006UW24025

PATIENT
  Age: 17163 Day
  Sex: Male
  Weight: 122 kg

DRUGS (14)
  1. SEROQUEL [Suspect]
     Indication: SCHIZOPHRENIA, PARANOID TYPE
     Dosage: 50-400 MG
     Route: 048
     Dates: start: 20000601, end: 20010101
  2. SEROQUEL [Suspect]
     Route: 048
  3. ABILIFY [Concomitant]
  4. CLOZARIL [Concomitant]
  5. NAVANE [Concomitant]
     Dates: start: 19860101
  6. RISPERDAL [Concomitant]
  7. THORAZINE [Concomitant]
     Dates: start: 19970101
  8. ZYPREXA/SYMBYAX [Concomitant]
     Dates: start: 19970801, end: 20011201
  9. MARIJUANA [Concomitant]
     Dates: start: 19730101, end: 19800101
  10. NEURONTIN [Concomitant]
     Indication: PAIN
     Dates: start: 20010918
  11. NEURONTIN [Concomitant]
     Indication: AFFECTIVE DISORDER
     Dates: start: 20010918
  12. CELEXA [Concomitant]
     Indication: DEPRESSION
     Dates: start: 20010918
  13. TOPAMAX [Concomitant]
     Indication: TACHYPHRENIA
     Dates: start: 20010919
  14. HYDROCHLOROTHIAZIDE [Concomitant]
     Dates: start: 20000501

REACTIONS (3)
  - DIABETIC NEUROPATHY [None]
  - TYPE 2 DIABETES MELLITUS [None]
  - VISION BLURRED [None]
